FAERS Safety Report 9324619 (Version 1)
Quarter: 2013Q2

REPORT INFORMATION
  Report Type: Spontaneous
  Country: US (occurrence: US)
  Receive Date: 20130603
  Receipt Date: 20130603
  Transmission Date: 20140414
  Serious: Yes (Hospitalization)
  Sender: FDA-Public Use
  Company Number: US-GLAXOSMITHKLINE-A0789250A

PATIENT
  Age: 43 Year
  Sex: Male
  Weight: 99.5 kg

DRUGS (1)
  1. AVANDIA [Suspect]
     Indication: TYPE 2 DIABETES MELLITUS
     Dosage: 4MG PER DAY
     Route: 048
     Dates: start: 20000605, end: 20060601

REACTIONS (3)
  - Myocardial infarction [Unknown]
  - Palpitations [Unknown]
  - Chest discomfort [Unknown]
